FAERS Safety Report 8327079-9 (Version None)
Quarter: 2012Q2

REPORT INFORMATION
  Report Type: 
  Country: None (occurrence: None)
  Receive Date: 20120501
  Receipt Date: 20120207
  Transmission Date: 20120825
  Serious: No
  Sender: FDA-Public Use
  Company Number: US-SANOFI-AVENTIS-2012SA008427

PATIENT
  Age: 40 Year
  Sex: Female
  Weight: 61 kg

DRUGS (1)
  1. APIDRA [Suspect]
     Indication: TYPE 1 DIABETES MELLITUS
     Route: 058
     Dates: start: 20120101, end: 20120210

REACTIONS (3)
  - PRODUCT QUALITY ISSUE [None]
  - VULVOVAGINAL MYCOTIC INFECTION [None]
  - DIABETES MELLITUS INADEQUATE CONTROL [None]
